FAERS Safety Report 13355412 (Version 1)
Quarter: 2017Q1

REPORT INFORMATION
  Report Type: Spontaneous
  Country: US (occurrence: US)
  Receive Date: 20170321
  Receipt Date: 20170321
  Transmission Date: 20170429
  Serious: Yes (Hospitalization)
  Sender: FDA-Public Use
  Company Number: None

PATIENT
  Age: 72 Year
  Sex: Male
  Weight: 88.53 kg

DRUGS (6)
  1. METOPROLOL. [Concomitant]
     Active Substance: METOPROLOL
  2. NIACIN. [Concomitant]
     Active Substance: NIACIN
  3. ACYCLOVIR. [Concomitant]
     Active Substance: ACYCLOVIR
  4. SIMVASTATIN. [Concomitant]
     Active Substance: SIMVASTATIN
  5. REVLIMID [Suspect]
     Active Substance: LENALIDOMIDE
     Indication: PLASMA CELL MYELOMA
     Route: 048
     Dates: start: 20160202, end: 20170116
  6. OMEPRAZOLE. [Concomitant]
     Active Substance: OMEPRAZOLE

REACTIONS (4)
  - Musculoskeletal chest pain [None]
  - Pneumonia [None]
  - Rib fracture [None]
  - Cough [None]

NARRATIVE: CASE EVENT DATE: 20161223
